FAERS Safety Report 18048507 (Version 1)
Quarter: 2020Q3

REPORT INFORMATION
  Report Type: Spontaneous
  Country: MY (occurrence: MY)
  Receive Date: 20200721
  Receipt Date: 20200721
  Transmission Date: 20201103
  Serious: Yes (Other)
  Sender: FDA-Public Use
  Company Number: NVSC2020MY201728

PATIENT
  Age: 19 Year
  Sex: Female

DRUGS (5)
  1. TACROLIMUS. [Suspect]
     Active Substance: TACROLIMUS
     Indication: IMMUNOSUPPRESSANT DRUG THERAPY
     Dosage: 6.5 MG, BID
     Route: 065
     Dates: start: 20190131
  2. MYCOPHENOLATE SODIUM [Suspect]
     Active Substance: MYCOPHENOLATE SODIUM
     Indication: IMMUNOSUPPRESSANT DRUG THERAPY
     Dosage: 720 MG, BID
     Route: 065
     Dates: start: 20190131
  3. MYCOPHENOLATE SODIUM [Suspect]
     Active Substance: MYCOPHENOLATE SODIUM
     Dosage: 180 MG, BID
     Route: 065
     Dates: start: 20190131
  4. MYCOPHENOLATE SODIUM [Suspect]
     Active Substance: MYCOPHENOLATE SODIUM
     Dosage: 540 MG, BID
     Route: 065
     Dates: start: 20190131
  5. MYCOPHENOLATE SODIUM [Suspect]
     Active Substance: MYCOPHENOLATE SODIUM
     Dosage: 360 MG, BID
     Route: 065
     Dates: start: 20190131

REACTIONS (13)
  - Suture related complication [Unknown]
  - Atrophy [Unknown]
  - Tubulointerstitial nephritis [Unknown]
  - Glomerulonephritis [Unknown]
  - Renal disorder [Recovering/Resolving]
  - Cytomegalovirus nephritis [Unknown]
  - Kidney transplant rejection [Unknown]
  - Capillaritis [Unknown]
  - Hydronephrosis [Recovered/Resolved]
  - Kidney fibrosis [Unknown]
  - Ureteric stenosis [Unknown]
  - Polyomavirus-associated nephropathy [Unknown]
  - Urinary tract infection [Recovered/Resolved]
